FAERS Safety Report 7177069-7 (Version None)
Quarter: 2010Q4

REPORT INFORMATION
  Report Type: 
  Country: None (occurrence: None)
  Receive Date: 20101216
  Receipt Date: 20101216
  Transmission Date: 20110411
  Serious: Yes (Other)
  Sender: FDA-Public Use
  Company Number: None

PATIENT
  Age: 15 Year
  Sex: Male

DRUGS (1)
  1. BACTRIM DS [Suspect]
     Indication: FURUNCLE
     Dosage: 1 TAB BID PO
     Route: 048

REACTIONS (8)
  - ABNORMAL BEHAVIOUR [None]
  - AGGRESSION [None]
  - DEPRESSION [None]
  - HYPOPHAGIA [None]
  - INSOMNIA [None]
  - INTENTIONAL SELF-INJURY [None]
  - SELF-INJURIOUS IDEATION [None]
  - THERMAL BURN [None]
